FAERS Safety Report 6448950-9 (Version None)
Quarter: 2009Q4

REPORT INFORMATION
  Report Type: 
  Country: None (occurrence: None)
  Receive Date: 20091120
  Receipt Date: 20091117
  Transmission Date: 20100525
  Serious: Yes (Hospitalization)
  Sender: FDA-Public Use
  Company Number: A0817807A

PATIENT
  Age: 52 Year
  Sex: Male

DRUGS (1)
  1. AVANDIA [Suspect]
     Dosage: 8MG TWICE PER DAY
     Route: 065

REACTIONS (5)
  - BLINDNESS [None]
  - CARDIAC DISORDER [None]
  - CHEST PAIN [None]
  - HYPOAESTHESIA [None]
  - VISUAL IMPAIRMENT [None]
